FAERS Safety Report 24282519 (Version 1)
Quarter: 2024Q3

REPORT INFORMATION
  Report Type: Report from Study
  Country: US (occurrence: US)
  Receive Date: 20240904
  Receipt Date: 20240904
  Transmission Date: 20241016
  Serious: Yes (Other)
  Sender: JOHNSON AND JOHNSON
  Company Number: US-VIIV HEALTHCARE LIMITED-US2024AMR096064

PATIENT
  Sex: Male

DRUGS (2)
  1. RILPIVIRINE [Suspect]
     Active Substance: RILPIVIRINE
     Indication: HIV infection
     Dosage: 6 ML
     Route: 030
     Dates: start: 20240318
  2. CABOTEGRAVIR [Suspect]
     Active Substance: CABOTEGRAVIR
     Indication: HIV infection
     Dosage: 6 ML
     Route: 030
     Dates: start: 20240318

REACTIONS (6)
  - Abscess [Recovering/Resolving]
  - Swelling [Recovering/Resolving]
  - Condition aggravated [Unknown]
  - Erythema [Unknown]
  - Induration [Unknown]
  - Product administration error [Unknown]

NARRATIVE: CASE EVENT DATE: 20240601
